FAERS Safety Report 15137172 (Version 1)
Quarter: 2018Q3

REPORT INFORMATION
  Report Type: Spontaneous
  Country: PR (occurrence: PR)
  Receive Date: 20180712
  Receipt Date: 20180712
  Transmission Date: 20181010
  Serious: No
  Sender: FDA-Public Use
  Company Number: PR-FOUNDATIONCONSUMERHC-2017-PR-000007

PATIENT
  Age: 18 Year
  Sex: Female
  Weight: 58.97 kg

DRUGS (3)
  1. NEXT CHOICE ONE DOSE [Suspect]
     Active Substance: LEVONORGESTREL
     Dosage: 1 TABLET X 1 DOSE
     Route: 048
     Dates: start: 20171127, end: 20171127
  2. UNSPECIFIED ADD MEDICATION [Concomitant]
  3. ZYRTEC [Concomitant]
     Active Substance: CETIRIZINE HYDROCHLORIDE

REACTIONS (3)
  - Menstrual disorder [Unknown]
  - Nausea [Recovered/Resolved]
  - Headache [Unknown]

NARRATIVE: CASE EVENT DATE: 20171127
